FAERS Safety Report 8844953 (Version 1)
Quarter: 2012Q4

REPORT INFORMATION
  Report Type: Report from Study
  Country: JP (occurrence: JP)
  Receive Date: 20121017
  Receipt Date: 20121017
  Transmission Date: 20130627
  Serious: Yes (Hospitalization)
  Sender: FDA-Public Use
  Company Number: PHHY2012JP092046

PATIENT
  Age: 52 Year
  Sex: Male
  Weight: 61 kg

DRUGS (3)
  1. AFINITOR [Suspect]
     Indication: METASTATIC RENAL CELL CARCINOMA
     Dosage: 10 mg, UNK
     Route: 048
     Dates: start: 20120730
  2. AFINITOR [Suspect]
     Dosage: 5 mg, UNK
     Route: 048
     Dates: start: 20120813, end: 20120912
  3. SUNITINIB MALATE [Concomitant]
     Indication: METASTATIC RENAL CELL CARCINOMA
     Dosage: 37.5 mg, UNK
     Route: 048
     Dates: start: 20110822, end: 20120729

REACTIONS (4)
  - Drug eruption [Recovering/Resolving]
  - White blood cell count increased [Unknown]
  - Eosinophil count increased [Unknown]
  - Aphthous stomatitis [Recovered/Resolved]
